FAERS Safety Report 4983383-3 (Version None)
Quarter: 2006Q2

REPORT INFORMATION
  Report Type: 
  Country: None (occurrence: None)
  Receive Date: 20060426
  Receipt Date: 20051006
  Transmission Date: 20061013
  Serious: Yes (Hospitalization, Other)
  Sender: FDA-Public Use
  Company Number: US-MERCK-0510USA05547

PATIENT
  Age: 89 Year
  Sex: Female
  Weight: 53 kg

DRUGS (7)
  1. VIOXX [Suspect]
     Indication: ARTHRALGIA
     Route: 048
     Dates: start: 20000101, end: 20031001
  2. VIOXX [Suspect]
     Route: 048
     Dates: start: 20000101, end: 20031001
  3. SKELAXIN [Concomitant]
     Route: 065
  4. NORVASC [Concomitant]
     Route: 065
  5. LEVOXYL [Concomitant]
     Route: 065
  6. DOLMEN [Concomitant]
     Route: 065
  7. LORAZEPAM [Concomitant]
     Route: 065

REACTIONS (38)
  - ACUTE CORONARY SYNDROME [None]
  - ANGINA PECTORIS [None]
  - ANGINA UNSTABLE [None]
  - ANOREXIA [None]
  - AORTIC VALVE INCOMPETENCE [None]
  - BALANCE DISORDER [None]
  - BLADDER DISORDER [None]
  - BREAST CANCER [None]
  - CARDIOMEGALY [None]
  - CAROTID ARTERY STENOSIS [None]
  - CAROTID BRUIT [None]
  - CHEST PAIN [None]
  - CHOLELITHIASIS [None]
  - CORONARY ARTERY DISEASE [None]
  - COSTOCHONDRITIS [None]
  - DIVERTICULUM INTESTINAL [None]
  - DYSPHAGIA [None]
  - FALL [None]
  - GASTRIC ULCER [None]
  - GASTROOESOPHAGEAL REFLUX DISEASE [None]
  - HAEMATOMA [None]
  - HYPERLIPIDAEMIA [None]
  - HYPERTENSION [None]
  - HYPOKALAEMIA [None]
  - HYPOTHYROIDISM [None]
  - LUNG NEOPLASM [None]
  - MITRAL VALVE INCOMPETENCE [None]
  - MUSCULOSKELETAL CHEST PAIN [None]
  - MYOCARDIAL INFARCTION [None]
  - NECK PAIN [None]
  - OCCULT BLOOD POSITIVE [None]
  - PAIN IN EXTREMITY [None]
  - SPINAL COLUMN STENOSIS [None]
  - SYNCOPE [None]
  - URINARY INCONTINENCE [None]
  - URINARY RETENTION [None]
  - VAGINAL PROLAPSE [None]
  - WEIGHT DECREASED [None]
